FAERS Safety Report 21210211 (Version 2)
Quarter: 2022Q3

REPORT INFORMATION
  Report Type: Spontaneous
  Country: DE (occurrence: DE)
  Receive Date: 20220814
  Receipt Date: 20220823
  Transmission Date: 20221027
  Serious: No
  Sender: FDA-Public Use
  Company Number: DE-UCBSA-2022037588

PATIENT
  Sex: Male

DRUGS (5)
  1. NEUPRO [Suspect]
     Active Substance: ROTIGOTINE
     Indication: Product used for unknown indication
     Dosage: 2MG + 4MG
     Route: 062
     Dates: start: 20211209
  2. NEUPRO [Suspect]
     Active Substance: ROTIGOTINE
     Dosage: 8 MILLIGRAM, UNK
     Route: 062
     Dates: start: 202201
  3. NEUPRO [Suspect]
     Active Substance: ROTIGOTINE
     Dosage: 4MG +6MG
     Route: 062
     Dates: start: 202203
  4. NEUPRO [Suspect]
     Active Substance: ROTIGOTINE
     Dosage: 4MG + 8MG (8MG EURIMPHARM)
     Route: 062
     Dates: start: 202204
  5. BENSERAZIDE HYDROCHLORIDE\LEVODOPA [Concomitant]
     Active Substance: BENSERAZIDE HYDROCHLORIDE\LEVODOPA
     Indication: Product used for unknown indication

REACTIONS (5)
  - Condition aggravated [Unknown]
  - Dizziness [Unknown]
  - Fall [Unknown]
  - Product adhesion issue [Unknown]
  - Therapeutic product ineffective [Unknown]
